FAERS Safety Report 7927568-2 (Version None)
Quarter: 2011Q4

REPORT INFORMATION
  Report Type: 
  Country: None (occurrence: None)
  Receive Date: 20111118
  Receipt Date: 20111104
  Transmission Date: 20120403
  Serious: Yes (Other)
  Sender: FDA-Public Use
  Company Number: US-ROCHE-1009987

PATIENT
  Sex: Female

DRUGS (1)
  1. CATHFLO ACTIVASE [Suspect]
     Indication: PRODUCT USED FOR UNKNOWN INDICATION

REACTIONS (18)
  - HAIR GROWTH ABNORMAL [None]
  - PRURITUS [None]
  - PIGMENTATION DISORDER [None]
  - DRY SKIN [None]
  - SKIN REACTION [None]
  - HYPERGLYCAEMIA [None]
  - SKIN DISORDER [None]
  - HYPERTENSION [None]
  - DIABETES MELLITUS [None]
  - DIALYSIS [None]
  - IMPAIRED HEALING [None]
  - NEOPLASM MALIGNANT [None]
  - PRURITUS GENERALISED [None]
  - GAIT DISTURBANCE [None]
  - SKIN NECROSIS [None]
  - INSOMNIA [None]
  - NAIL GROWTH ABNORMAL [None]
  - DANDRUFF [None]
